FAERS Safety Report 15143014 (Version 1)
Quarter: 2018Q3

REPORT INFORMATION
  Report Type: Spontaneous
  Country: US (occurrence: US)
  Receive Date: 20180618
  Receipt Date: 20180618
  Transmission Date: 20181010
  Serious: Yes (Death)
  Sender: FDA-Public Use
  Company Number: None

PATIENT
  Age: 59 Year
  Sex: Male

DRUGS (1)
  1. JAKAVI 20MG NOVARTIS [Suspect]
     Active Substance: RUXOLITINIB
     Indication: ANAEMIA
     Route: 048
     Dates: start: 20170615, end: 20180202

REACTIONS (1)
  - Death [None]

NARRATIVE: CASE EVENT DATE: 20180308
